FAERS Safety Report 18630229 (Version 2)
Quarter: 2021Q1

REPORT INFORMATION
  Report Type: Report from Study
  Country: AU (occurrence: AU)
  Receive Date: 20201217
  Receipt Date: 20210318
  Transmission Date: 20210419
  Serious: Yes (Other)
  Sender: FDA-Public Use
  Company Number: AU-REGENERON PHARMACEUTICALS, INC.-2019-74021

PATIENT

DRUGS (7)
  1. EYLEA [Suspect]
     Active Substance: AFLIBERCEPT
     Dosage: RIGHT EYE, EVERY 12 WEEKS
     Route: 031
  2. EYLEA [Suspect]
     Active Substance: AFLIBERCEPT
     Dosage: RIGHT EYE, EVERY 6 WEEKS
     Route: 031
  3. EYLEA [Suspect]
     Active Substance: AFLIBERCEPT
     Dosage: BILATERAL, Q6WK
     Route: 031
     Dates: start: 201904
  4. EYLEA [Suspect]
     Active Substance: AFLIBERCEPT
     Dosage: RIGHT EYE, EVERY 8 WEEKS
     Route: 031
  5. EYLEA [Suspect]
     Active Substance: AFLIBERCEPT
     Indication: NEOVASCULAR AGE-RELATED MACULAR DEGENERATION
     Dosage: RIGHT EYE
     Route: 031
     Dates: start: 2014, end: 201904
  6. EYLEA [Suspect]
     Active Substance: AFLIBERCEPT
     Dosage: BOTH EYES CONTINUE WITH INJECTIONS EVERY SIX WEEKS WITH A TWO WEEK GAP BETWEEN EYES.
     Route: 031
  7. EYLEA [Suspect]
     Active Substance: AFLIBERCEPT
     Dosage: UNK; INTRAVITREAL INJECTION ? PATIENT DOES NOT KNOW THE DOSE OR HOW IT COMES
     Route: 031

REACTIONS (8)
  - Injection site erythema [Recovering/Resolving]
  - Cataract operation [Unknown]
  - Neovascular age-related macular degeneration [Unknown]
  - Neovascular age-related macular degeneration [Recovering/Resolving]
  - Therapeutic product ineffective [Unknown]
  - Injection site discomfort [Recovered/Resolved]
  - Visual impairment [Recovering/Resolving]
  - Cataract operation [Unknown]

NARRATIVE: CASE EVENT DATE: 201904
